FAERS Safety Report 4600038-5 (Version None)
Quarter: 2005Q1

REPORT INFORMATION
  Report Type: 
  Country: None (occurrence: None)
  Receive Date: 20050303
  Receipt Date: 20050214
  Transmission Date: 20050727
  Serious: No
  Sender: FDA-Public Use
  Company Number: 10324

PATIENT
  Age: 11 Year
  Sex: Female

DRUGS (9)
  1. METHOTREXATE [Suspect]
     Dosage: 20 MG WEEKLY; SC
     Route: 058
     Dates: start: 19930101, end: 20010501
  2. MORPHINE SULFATE [Concomitant]
  3. PREDNISOLONE [Concomitant]
  4. PIROXICAM [Concomitant]
  5. GABAPENTIN [Concomitant]
  6. GROWTH HORMONE [Concomitant]
  7. FOLIC ACID [Concomitant]
  8. MORPHINE [Concomitant]
  9. RANITIDINE [Concomitant]

REACTIONS (2)
  - HERPES ZOSTER [None]
  - INTERCOSTAL NEURALGIA [None]
